FAERS Safety Report 7992583-X (Version None)
Quarter: 2011Q4

REPORT INFORMATION
  Report Type: 
  Country: None (occurrence: None)
  Receive Date: 20111219
  Receipt Date: 20111214
  Transmission Date: 20120403
  Serious: Yes (Hospitalization)
  Sender: FDA-Public Use
  Company Number: GB-BAYER-2011-121114

PATIENT
  Age: 70 Year
  Sex: Male
  Weight: 72 kg

DRUGS (11)
  1. XARELTO [Interacting]
     Indication: HIP ARTHROPLASTY
     Dosage: 10 MG, QD
     Route: 048
     Dates: start: 20111116, end: 20111124
  2. ANAESTHETICS [Concomitant]
     Indication: HIP ARTHROPLASTY
     Dosage: UNK
     Dates: start: 20111116
  3. ATENOLOL [Concomitant]
     Dosage: 25 MG DAILY
  4. ZOLPIDEM [Concomitant]
  5. BENDROFLUMETHIAZIDE [Concomitant]
     Dosage: UNK
     Dates: end: 20111125
  6. SIMVASTATIN [Concomitant]
     Dosage: 40 MG DAILY
  7. ACETYLSALICYLIC ACID SRT [Suspect]
     Dosage: UNK
     Dates: end: 20111124
  8. RAMIPRIL [Concomitant]
  9. MORPHINE SULFATE [Concomitant]
  10. MORPHINE SULFATE [Concomitant]
     Dosage: 10 MG PRN
  11. ALLOPURINOL [Concomitant]
     Dosage: 300 MG DAILY

REACTIONS (5)
  - HEADACHE [None]
  - PYREXIA [None]
  - OEDEMA PERIPHERAL [None]
  - HAEMOGLOBIN DECREASED [None]
  - POST PROCEDURAL HAEMATOMA [None]
